FAERS Safety Report 18158034 (Version 1)
Quarter: 2020Q3

REPORT INFORMATION
  Report Type: Spontaneous
  Country: US (occurrence: US)
  Receive Date: 20200817
  Receipt Date: 20200817
  Transmission Date: 20201103
  Serious: No
  Sender: FDA-Public Use
  Company Number: US-MEDEXUS PHARMA, INC.-2020MED00068

PATIENT
  Sex: Female

DRUGS (1)
  1. RASUVO [Suspect]
     Active Substance: METHOTREXATE SODIUM
     Indication: PSORIATIC ARTHROPATHY
     Dosage: 15 MG, 1X/WEEK EVERY TUESDAY INJECTED INTO RIGHT HIP

REACTIONS (5)
  - Injection site urticaria [Not Recovered/Not Resolved]
  - Accidental exposure to product [Unknown]
  - Intentional dose omission [Recovered/Resolved]
  - Device malfunction [Not Recovered/Not Resolved]
  - Device failure [Recovered/Resolved]

NARRATIVE: CASE EVENT DATE: 2019
